FAERS Safety Report 8798287 (Version 2)
Quarter: 2012Q4

REPORT INFORMATION
  Report Type: Report from Study
  Country: GB (occurrence: GB)
  Receive Date: 20120920
  Receipt Date: 20121213
  Transmission Date: 20130627
  Serious: Yes (Hospitalization)
  Sender: FDA-Public Use
  Company Number: GB-ROCHE-1088389

PATIENT
  Age: 69 Year
  Sex: Female
  Weight: 66.2 kg

DRUGS (13)
  1. BLINDED PERTUZUMAB [Suspect]
     Indication: BREAST CANCER
     Dosage: Last dose prior to SAE on 22/Aug/2012
     Route: 042
     Dates: start: 20120612
  2. TRASTUZUMAB [Suspect]
     Indication: BREAST CANCER
     Dosage: Last dose prior to SAE on 22/Aug/2012
     Route: 042
     Dates: start: 20120612
  3. DOCETAXEL [Suspect]
     Indication: BREAST CANCER
     Route: 042
     Dates: start: 20120822
  4. DOCETAXEL [Suspect]
     Route: 042
  5. DOCETAXEL [Suspect]
     Route: 065
     Dates: start: 20120801
  6. CARBOPLATIN [Suspect]
     Indication: BREAST CANCER
     Route: 042
     Dates: start: 20120822
  7. CARBOPLATIN [Suspect]
     Route: 042
  8. CARBOPLATIN [Suspect]
     Route: 065
     Dates: start: 20120801
  9. LANSOPRAZOLE [Concomitant]
     Route: 065
     Dates: start: 20120703
  10. LANSOPRAZOLE [Concomitant]
     Route: 065
     Dates: start: 20120808
  11. THYROXINE [Concomitant]
  12. SUCRATE [Concomitant]
     Route: 065
     Dates: start: 20120710
  13. DOMPERIDONE [Concomitant]
     Route: 065
     Dates: start: 20120704

REACTIONS (5)
  - Malaise [Unknown]
  - Dehydration [Recovered/Resolved]
  - Malaise [Recovered/Resolved]
  - Nausea [Recovered/Resolved]
  - Vomiting [Recovered/Resolved]
